FAERS Safety Report 24078533 (Version 1)
Quarter: 2024Q3

REPORT INFORMATION
  Report Type: Spontaneous
  Country: IT (occurrence: IT)
  Receive Date: 20240711
  Receipt Date: 20240711
  Transmission Date: 20241016
  Serious: Yes (Hospitalization, Other)
  Sender: MERCK
  Company Number: IT-009507513-2407ITA004128

PATIENT
  Age: 79 Year
  Sex: Female

DRUGS (2)
  1. KEYTRUDA [Suspect]
     Active Substance: PEMBROLIZUMAB
     Indication: Metastatic renal cell carcinoma
     Dosage: 200 MILLIGRAM, Q3W
     Dates: start: 2024
  2. LENVATINIB MESYLATE [Suspect]
     Active Substance: LENVATINIB MESYLATE
     Indication: Metastatic renal cell carcinoma
     Dosage: 14 MILLIGRAM
     Route: 048
     Dates: start: 2024

REACTIONS (5)
  - Cardiac failure [Unknown]
  - Acute kidney injury [Unknown]
  - Cardiac disorder [Unknown]
  - Metabolic acidosis [Unknown]
  - Product use issue [Unknown]
